FAERS Safety Report 16048315 (Version 1)
Quarter: 2019Q1

REPORT INFORMATION
  Report Type: Spontaneous
  Country: DE (occurrence: DE)
  Receive Date: 20190307
  Receipt Date: 20190307
  Transmission Date: 20190418
  Serious: Yes (Other)
  Sender: FDA-Public Use
  Company Number: DE-JNJFOC-20190118575

PATIENT
  Age: 51 Year
  Sex: Male

DRUGS (1)
  1. SIMPONI [Suspect]
     Active Substance: GOLIMUMAB
     Indication: PROCTITIS ULCERATIVE
     Route: 058
     Dates: start: 201807, end: 2019

REACTIONS (2)
  - Drug ineffective [Unknown]
  - Haematochezia [Unknown]

NARRATIVE: CASE EVENT DATE: 201901
